FAERS Safety Report 4692467-9 (Version None)
Quarter: 2005Q2

REPORT INFORMATION
  Report Type: 
  Country: None (occurrence: None)
  Receive Date: 20050613
  Receipt Date: 20050509
  Transmission Date: 20051028
  Serious: Yes (Hospitalization)
  Sender: FDA-Public Use
  Company Number: 2005-01021

PATIENT
  Age: 60 Year
  Sex: Female
  Weight: 96.1 kg

DRUGS (10)
  1. VELCADE [Suspect]
     Indication: MULTIPLE MYELOMA
     Dosage: 1.30 MG/M2, 2/WEEK, INTRAVENOUS
     Route: 042
     Dates: start: 20050404, end: 20050414
  2. SCIO-469 () CAPSULE [Suspect]
     Indication: MULTIPLE MYELOMA
     Dosage: 60.00 MG, TID, ORAL
     Route: 048
     Dates: start: 20050224
  3. NEURONTIN [Concomitant]
  4. LOPRESSOR [Concomitant]
  5. ACYCLOVIR [Concomitant]
  6. PYRIDOXINE (PYRIDOXINE) [Concomitant]
  7. LIPITOR [Concomitant]
  8. LEVOXYL [Concomitant]
  9. ALLOPURINOL [Concomitant]
  10. DEFEROXAMINE HYDROCHLORIDE (DEFEROXAMINE HYDROCHLORIDE) [Concomitant]

REACTIONS (2)
  - ASTHENIA [None]
  - EPISTAXIS [None]
